FAERS Safety Report 15656721 (Version 1)
Quarter: 2018Q4

REPORT INFORMATION
  Report Type: Spontaneous
  Country: DE (occurrence: DE)
  Receive Date: 20181126
  Receipt Date: 20181126
  Transmission Date: 20190205
  Serious: Yes (Other)
  Sender: FDA-Public Use
  Company Number: DE-SANIK-2018SA318476AA

PATIENT
  Age: 34 Year
  Sex: Male
  Weight: 98 kg

DRUGS (2)
  1. FEXOFENADINE [Suspect]
     Active Substance: FEXOFENADINE\FEXOFENADINE HYDROCHLORIDE
     Indication: ALLERGY TO PLANTS
     Dosage: 120 MG, QD
     Route: 048
     Dates: start: 20030620, end: 20030703
  2. RITALIN [Suspect]
     Active Substance: METHYLPHENIDATE HYDROCHLORIDE
     Indication: ATTENTION DEFICIT/HYPERACTIVITY DISORDER
     Dosage: 20 TO 40 MG/DAY
     Route: 048
     Dates: start: 200210

REACTIONS (8)
  - Drug interaction [Unknown]
  - Drug ineffective [Unknown]
  - Delusion [Recovered/Resolved]
  - Auditory disorder [Recovered/Resolved]
  - Anxiety [Unknown]
  - Depression [Recovered/Resolved]
  - Decreased activity [Unknown]
  - Stress [Unknown]

NARRATIVE: CASE EVENT DATE: 200306
